FAERS Safety Report 8465061-1 (Version None)
Quarter: 2012Q2

REPORT INFORMATION
  Report Type: 
  Country: None (occurrence: None)
  Receive Date: 20120626
  Receipt Date: 20120619
  Transmission Date: 20120825
  Serious: Yes (Hospitalization)
  Sender: FDA-Public Use
  Company Number: US-BAYER-2012-012219

PATIENT
  Age: 41 Year
  Sex: Female
  Weight: 85.714 kg

DRUGS (11)
  1. IBUPROFEN [Concomitant]
     Dosage: 800 MG, PRN
  2. ALLEGRA [Concomitant]
     Dosage: 180
  3. PERCOCET [Concomitant]
     Dosage: UNK UNK, PRN
  4. PROZAC [Concomitant]
     Dosage: 20 MG, UNK
  5. LOESTRIN 1.5/30 [Concomitant]
     Dosage: UNK
  6. YAZ [Suspect]
     Indication: CONTRACEPTION
     Dosage: UNK
     Route: 048
     Dates: start: 20080201, end: 20091101
  7. OXAPROZIN [Concomitant]
     Dosage: UNK UNK, BID
  8. YASMIN [Suspect]
     Indication: CONTRACEPTION
     Dosage: UNK
     Route: 048
     Dates: start: 20030101, end: 20080101
  9. CICLESONIDE [Concomitant]
     Dosage: 2 SPRAYS ONCE A DAY
  10. ULTRAM [Concomitant]
     Dosage: 50 MG, PRN
  11. DAYPRO [Concomitant]
     Dosage: 600 MG, UNK

REACTIONS (5)
  - INJURY [None]
  - NAUSEA [None]
  - BILIARY DYSKINESIA [None]
  - ABDOMINAL PAIN [None]
  - GALLBLADDER INJURY [None]
